FAERS Safety Report 5075764-7 (Version None)
Quarter: 2006Q3

REPORT INFORMATION
  Report Type: 
  Country: None (occurrence: None)
  Receive Date: 20060809
  Receipt Date: 20060727
  Transmission Date: 20061208
  Serious: Yes (Hospitalization)
  Sender: FDA-Public Use
  Company Number: AU-NOVOPROD-255648

PATIENT
  Age: 15 Year
  Sex: Male

DRUGS (2)
  1. PROTAPHANE PENFILL [Suspect]
     Indication: DRUG USE FOR UNKNOWN INDICATION
  2. NOVORAPID PENFILL [Concomitant]
     Indication: DRUG USE FOR UNKNOWN INDICATION

REACTIONS (1)
  - SWELLING FACE [None]
